FAERS Safety Report 8801942 (Version 1)
Quarter: 2012Q4

REPORT INFORMATION
  Report Type: 
  Country: SI (occurrence: SI)
  Receive Date: 20120921
  Receipt Date: 20120921
  Transmission Date: 20130627
  Serious: Yes (Hospitalization)
  Sender: FDA-Public Use
  Company Number: PHHY2012SI080551

PATIENT
  Age: 18 Year
  Sex: Female

DRUGS (2)
  1. DOXORUBICIN [Suspect]
     Indication: ACUTE LYMPHOCYTIC LEUKAEMIA
     Route: 042
  2. VINCRISTINE [Suspect]
     Indication: ACUTE LYMPHOCYTIC LEUKAEMIA
     Route: 042

REACTIONS (13)
  - Acute respiratory distress syndrome [Recovered/Resolved]
  - Septic shock [Recovered/Resolved]
  - Shock haemorrhagic [Recovered/Resolved]
  - Lung infiltration [Recovered/Resolved]
  - Hepatic failure [Recovered/Resolved]
  - Ejection fraction decreased [Unknown]
  - Streptococcal bacteraemia [Recovered/Resolved]
  - Pulmonary haemorrhage [Recovered/Resolved]
  - Gastrointestinal haemorrhage [Recovered/Resolved]
  - Hypotension [Recovered/Resolved]
  - Bone marrow failure [Recovered/Resolved]
  - Pancytopenia [Recovered/Resolved]
  - Coagulopathy [Recovered/Resolved]
